FAERS Safety Report 4325532-6 (Version None)
Quarter: 2004Q1

REPORT INFORMATION
  Report Type: 
  Country: None (occurrence: None)
  Receive Date: 20040324
  Receipt Date: 20040318
  Transmission Date: 20041129
  Serious: Yes (Hospitalization)
  Sender: FDA-Public Use
  Company Number: STA-AE-04-MTX-109

PATIENT
  Age: 61 Year
  Sex: Female

DRUGS (2)
  1. METHOTREXATE [Suspect]
     Indication: SJOGREN'S SYNDROME
     Dosage: 2.5 MG 2X PER 1 MTH, ORAL
     Route: 048
  2. PLAQUENIL [Suspect]
     Indication: SJOGREN'S SYNDROME
     Dosage: 2 DOSE 1X PER 1 DAY, ORAL
     Route: 048
     Dates: start: 19930615

REACTIONS (2)
  - CHOLESTASIS [None]
  - HEPATITIS GRANULOMATOUS [None]
